FAERS Safety Report 10295256 (Version 1)
Quarter: 2014Q3

REPORT INFORMATION
  Report Type: Spontaneous
  Country: US (occurrence: US)
  Receive Date: 20140710
  Receipt Date: 20140710
  Transmission Date: 20150326
  Serious: No
  Sender: FDA-Public Use
  Company Number: US-PURDUE-USA-2014-0113727

PATIENT
  Age: 67 Year
  Sex: Female

DRUGS (4)
  1. VALTREX [Concomitant]
     Active Substance: VALACYCLOVIR HYDROCHLORIDE
     Indication: VIITH NERVE PARALYSIS
     Dosage: 3 GRAM, DAILY
     Route: 048
     Dates: start: 20140505
  2. BUTRANS [Suspect]
     Active Substance: BUPRENORPHINE
     Indication: PAIN IN EXTREMITY
     Dosage: 5 MCG/HR, WEEKLY
     Route: 062
     Dates: start: 20140501, end: 20140502
  3. PREDNISONE. [Concomitant]
     Active Substance: PREDNISONE
     Indication: VIITH NERVE PARALYSIS
     Dosage: 60 MG, DAILY
     Route: 048
     Dates: start: 20140505
  4. BUTRANS [Suspect]
     Active Substance: BUPRENORPHINE
     Indication: ARTHRALGIA

REACTIONS (8)
  - Peripheral swelling [Not Recovered/Not Resolved]
  - Headache [Unknown]
  - Ocular hyperaemia [Not Recovered/Not Resolved]
  - Hypoaesthesia [Not Recovered/Not Resolved]
  - Swelling face [Not Recovered/Not Resolved]
  - VIIth nerve paralysis [Not Recovered/Not Resolved]
  - Lacrimation increased [Not Recovered/Not Resolved]
  - Dyskinesia [Not Recovered/Not Resolved]

NARRATIVE: CASE EVENT DATE: 20140503
